FAERS Safety Report 10041580 (Version 3)
Quarter: 2014Q2

REPORT INFORMATION
  Report Type: Spontaneous
  Country: US (occurrence: US)
  Receive Date: 20140327
  Receipt Date: 20140625
  Transmission Date: 20141212
  Serious: Yes (Other)
  Sender: FDA-Public Use
  Company Number: US-PFIZER INC-2014080638

PATIENT
  Age: 66 Year
  Sex: Female
  Weight: 69.8 kg

DRUGS (6)
  1. LIPITOR [Suspect]
     Indication: LOW DENSITY LIPOPROTEIN INCREASED
     Dosage: 40 MG, 1X/DAY
     Route: 048
     Dates: start: 20070116, end: 201307
  2. LIPITOR [Suspect]
     Indication: CARDIOVASCULAR EVENT PROPHYLAXIS
  3. CALCIUM [Concomitant]
     Dosage: 1200 MG, 1X/DAY
     Dates: start: 2000
  4. VITAMIN C [Concomitant]
     Dosage: 1000 MG, 1X/DAY
     Dates: start: 2002
  5. OMEGA 3 [Concomitant]
     Dosage: 1000 MG, 2X/DAY
     Dates: start: 2008
  6. VITAMIN D [Concomitant]
     Dosage: 2000 MG, 2X/DAY
     Dates: start: 2008

REACTIONS (1)
  - Type 2 diabetes mellitus [Not Recovered/Not Resolved]
